FAERS Safety Report 11130950 (Version 1)
Quarter: 2015Q2

REPORT INFORMATION
  Report Type: Spontaneous
  Country: FR (occurrence: FR)
  Receive Date: 20150522
  Receipt Date: 20150522
  Transmission Date: 20150821
  Serious: Yes (Hospitalization)
  Sender: FDA-Public Use
  Company Number: FR-BIOGENIDEC-2015BI068721

PATIENT
  Age: 36 Year
  Sex: Male

DRUGS (3)
  1. MARINOL [Concomitant]
     Active Substance: DRONABINOL
  2. GABAPENTIN. [Concomitant]
     Active Substance: GABAPENTIN
  3. AVONEX [Suspect]
     Active Substance: INTERFERON BETA-1A
     Indication: RELAPSING-REMITTING MULTIPLE SCLEROSIS
     Route: 030
     Dates: start: 2012, end: 201504

REACTIONS (2)
  - Intervertebral disc protrusion [Unknown]
  - Sciatica [Unknown]

NARRATIVE: CASE EVENT DATE: 201504
